FAERS Safety Report 15497381 (Version 1)
Quarter: 2018Q4

REPORT INFORMATION
  Report Type: Spontaneous
  Country: US (occurrence: US)
  Receive Date: 20181015
  Receipt Date: 20181015
  Transmission Date: 20190205
  Serious: No
  Sender: FDA-Public Use
  Company Number: US-009507513-1809USA008442

PATIENT

DRUGS (2)
  1. LENALIDOMIDE [Suspect]
     Active Substance: LENALIDOMIDE
     Indication: B-CELL LYMPHOMA
  2. KEYTRUDA [Suspect]
     Active Substance: PEMBROLIZUMAB
     Indication: B-CELL LYMPHOMA
     Dosage: UNK

REACTIONS (2)
  - Adverse event [Unknown]
  - Off label use [Unknown]
